FAERS Safety Report 9846222 (Version 1)
Quarter: 2014Q1

REPORT INFORMATION
  Report Type: Spontaneous
  Country: FR (occurrence: FR)
  Receive Date: 20140127
  Receipt Date: 20140127
  Transmission Date: 20141002
  Serious: Yes (Hospitalization)
  Sender: FDA-Public Use
  Company Number: FR-PFIZER INC-2014019149

PATIENT
  Age: 55 Year
  Sex: Female
  Weight: 41 kg

DRUGS (19)
  1. FLUOROURACILE PFIZER [Suspect]
     Dosage: 544 MG ON DAY 0, 1680 MG ON DAY 1 AND DAY 2
     Route: 042
     Dates: start: 20130905
  2. FLUOROURACILE PFIZER [Suspect]
     Dosage: 560 MG ON DAY 0 AND 1680 MG ON DAY 1 AND DAY 2
     Route: 042
     Dates: start: 20130919, end: 20130921
  3. IRINOTECAN MYLAN [Suspect]
     Dosage: 245 MG ON DAY 0
     Route: 041
     Dates: start: 20130905
  4. IRINOTECAN MYLAN [Suspect]
     Dosage: 210 MG, CYCLIC ON DAY 0
     Route: 041
     Dates: start: 20130919, end: 20130919
  5. OXALIPLATIN ACCORD [Suspect]
     Dosage: 115 MG, ON DAY 0
     Route: 041
     Dates: start: 20130905
  6. OXALIPLATIN ACCORD [Suspect]
     Dosage: 119 MG, ON DAY 0
     Route: 041
     Dates: start: 20130919, end: 20130919
  7. CALCIUM LEVOFOLINATE  ZENTIVA [Concomitant]
     Dosage: 272 MG, ON DAY 0
     Route: 042
     Dates: start: 20130905
  8. CALCIUM LEVOFOLINATE  ZENTIVA [Concomitant]
     Dosage: 280 MG, ON DAY 0
     Route: 042
     Dates: start: 20130919
  9. SKENAN LP [Concomitant]
     Indication: PAIN
     Dosage: 50 MG, 2X/DAY
     Route: 048
  10. ACTISKENAN [Concomitant]
     Indication: PAIN
     Dosage: 15 MG, SIX TIMES DAILY
     Route: 048
  11. DOLIPRANE [Concomitant]
     Indication: PAIN
     Dosage: 1 G, 4X/DAY
     Route: 048
  12. SOLUPRED [Concomitant]
     Indication: NAUSEA
     Dosage: 60 MG, 1X/DAY
     Route: 048
     Dates: start: 20130922, end: 20130925
  13. PRIMPERAN [Concomitant]
     Indication: NAUSEA
     Dosage: 20 MG, 3X/DAY
     Route: 048
  14. NEULASTA [Concomitant]
     Indication: PROPHYLAXIS
     Dosage: 6 MG, SINGLE
     Route: 058
     Dates: start: 20130908, end: 20130908
  15. NEULASTA [Concomitant]
     Dosage: 6 MG, SINGLE
     Route: 058
     Dates: start: 20130922, end: 20130922
  16. IMOVANE [Concomitant]
     Dosage: 3.75 MG, AS NEEDED
     Route: 048
  17. LYSANXIA [Concomitant]
     Dosage: 10 MG, AS NEEDED 30 MG DAILY MAX
     Route: 048
  18. EUPANTOL [Concomitant]
     Dosage: 20 MG, 1X/DAY
     Route: 048
  19. INNOHEP [Concomitant]
     Dosage: 4500 IU ANTI-XA/0.45 ML, 1X/DAY
     Route: 058

REACTIONS (1)
  - Colitis [Recovered/Resolved]
